FAERS Safety Report 14374631 (Version 1)
Quarter: 2018Q1

REPORT INFORMATION
  Report Type: Spontaneous
  Country: CN (occurrence: CN)
  Receive Date: 20180111
  Receipt Date: 20180111
  Transmission Date: 20180509
  Serious: Yes (Life-Threatening, Hospitalization, Other)
  Sender: FDA-Public Use
  Company Number: CN-009507513-1801CHN002643

PATIENT
  Age: 24 Year
  Sex: Female

DRUGS (9)
  1. CEFMINOX SODIUM [Suspect]
     Active Substance: CEFMINOX SODIUM
     Indication: INFLUENZA
     Dosage: UNK
     Dates: start: 20170206, end: 20170210
  2. VANCOMYCIN [Suspect]
     Active Substance: VANCOMYCIN
     Indication: INFLUENZA
     Dosage: UNK
     Dates: start: 20170211, end: 20170213
  3. AZITHROMYCIN ANHYDROUS. [Suspect]
     Active Substance: AZITHROMYCIN ANHYDROUS
     Indication: INFLUENZA
     Dosage: UNK
     Dates: start: 20170213
  4. MOXIFLOXACIN. [Suspect]
     Active Substance: MOXIFLOXACIN
     Indication: INFLUENZA
     Dosage: UNK
     Dates: start: 20170210, end: 20170211
  5. IMIPENEM AND CILASTATIN [Suspect]
     Active Substance: CILASTATIN SODIUM\IMIPENEM
     Indication: INFLUENZA
     Dosage: UNK
     Dates: start: 20170211, end: 20170213
  6. CEFOTAXIME SODIUM [Suspect]
     Active Substance: CEFOTAXIME SODIUM
     Indication: INFLUENZA
     Dosage: UNK
     Dates: start: 201702
  7. OSELTAMIVIR [Suspect]
     Active Substance: OSELTAMIVIR
     Indication: INFLUENZA
     Dosage: UNK
     Dates: start: 20170210, end: 20170211
  8. CEFUROXIME SODIUM. [Suspect]
     Active Substance: CEFUROXIME SODIUM
     Indication: INFLUENZA
     Dosage: UNK
     Dates: start: 20170213
  9. OSELTAMIVIR [Suspect]
     Active Substance: OSELTAMIVIR
     Dosage: UNK
     Dates: start: 20170213

REACTIONS (1)
  - Drug ineffective [Unknown]
